FAERS Safety Report 6412439-3 (Version None)
Quarter: 2009Q4

REPORT INFORMATION
  Report Type: 
  Country: None (occurrence: None)
  Receive Date: 20091023
  Receipt Date: 20091020
  Transmission Date: 20100525
  Serious: Yes (Life-Threatening, Hospitalization, Other)
  Sender: FDA-Public Use
  Company Number: US-MERCK-0910USA00385

PATIENT
  Age: 85 Year
  Sex: Male

DRUGS (3)
  1. JANUVIA [Suspect]
     Indication: TYPE 2 DIABETES MELLITUS
     Route: 048
  2. NORVASC [Concomitant]
     Route: 065
  3. HYZAAR [Concomitant]
     Route: 048

REACTIONS (3)
  - KETOACIDOSIS [None]
  - LOSS OF CONSCIOUSNESS [None]
  - PANCREATITIS [None]
